FAERS Safety Report 7436813 (Version 5)
Quarter: 2013Q3

REPORT INFORMATION
  Report Type: Report from Study
  Country: BE (occurrence: BE)
  Receive Date: 20100625
  Receipt Date: 20130911
  Transmission Date: 20140515
  Serious: Yes (Hospitalization)
  Sender: FDA-Public Use
  Company Number: BE-JNJFOC-20100603582

PATIENT
  Sex: Female
  Weight: 56 kg

DRUGS (6)
  1. REMICADE [Suspect]
     Indication: COLITIS ULCERATIVE
     Route: 042
     Dates: start: 20091224
  2. REMICADE [Suspect]
     Indication: COLITIS ULCERATIVE
     Route: 042
     Dates: start: 20100322
  3. LEDERTREXATE SODIUM [Concomitant]
     Indication: SPONDYLOARTHROPATHY
     Route: 030
     Dates: start: 20100112
  4. BUDENOFALK [Concomitant]
     Indication: PROCTITIS
     Route: 054
     Dates: start: 20100112, end: 20100527
  5. SOLU-CORTEF [Concomitant]
     Indication: PREMEDICATION
     Route: 042
  6. PARACETAMOL [Concomitant]
     Indication: PREMEDICATION
     Route: 042

REACTIONS (3)
  - Infusion related reaction [Recovered/Resolved]
  - Rectal haemorrhage [Not Recovered/Not Resolved]
  - Abdominal pain [Recovering/Resolving]
